FAERS Safety Report 10797240 (Version 1)
Quarter: 2015Q1

REPORT INFORMATION
  Report Type: Report from Study
  Country: US (occurrence: US)
  Receive Date: 20150216
  Receipt Date: 20150216
  Transmission Date: 20150721
  Serious: Yes (Other)
  Sender: FDA-Public Use
  Company Number: US-AMGEN-USASL2015013387

PATIENT
  Age: 20 Year
  Sex: Female

DRUGS (1)
  1. ENBREL [Suspect]
     Active Substance: ETANERCEPT
     Indication: JUVENILE IDIOPATHIC ARTHRITIS
     Dosage: 50 MG, QWK
     Route: 065
     Dates: start: 20040301

REACTIONS (14)
  - Type 1 diabetes mellitus [Not Recovered/Not Resolved]
  - Arthritis [Not Recovered/Not Resolved]
  - Scoliosis [Not Recovered/Not Resolved]
  - Congenital cystic kidney disease [Not Recovered/Not Resolved]
  - Osteoarthritis [Not Recovered/Not Resolved]
  - Injection site bruising [Not Recovered/Not Resolved]
  - Infection [Not Recovered/Not Resolved]
  - Pain [Not Recovered/Not Resolved]
  - Spinal column stenosis [Not Recovered/Not Resolved]
  - Joint swelling [Not Recovered/Not Resolved]
  - Fungal infection [Recovered/Resolved]
  - Urinary tract infection [Not Recovered/Not Resolved]
  - Kidney infection [Not Recovered/Not Resolved]
  - Joint effusion [Not Recovered/Not Resolved]

NARRATIVE: CASE EVENT DATE: 20140914
